FAERS Safety Report 4514143-5 (Version None)
Quarter: 2004Q4

REPORT INFORMATION
  Report Type: 
  Country: None (occurrence: None)
  Receive Date: 20041124
  Receipt Date: 20041110
  Transmission Date: 20050328
  Serious: No
  Sender: FDA-Public Use
  Company Number: 2004AP05738

PATIENT
  Age: 3 Year
  Sex: Female
  Weight: 17 kg

DRUGS (5)
  1. OMEPRAZOLE [Suspect]
     Dosage: 10 MG DAILY PO
     Route: 048
     Dates: start: 20040705
  2. PREDNISOLONE [Suspect]
     Dosage: 10 MG DAILY PO
     Route: 048
     Dates: start: 20040705
  3. VINCRISTINE SULFATE [Suspect]
     Dosage: 1 MG DAILY IV
     Route: 042
     Dates: start: 20040712
  4. COLASPASE [Suspect]
     Dosage: 3000 IU DAILY IV
     Route: 042
     Dates: start: 20040712
  5. DAUNORUBICIN [Suspect]
     Dosage: 4 MG DAILY IV
     Route: 042
     Dates: start: 20040712

REACTIONS (1)
  - HYPERGLYCAEMIA [None]
